FAERS Safety Report 17220193 (Version 1)
Quarter: 2019Q4

REPORT INFORMATION
  Report Type: Spontaneous
  Country: JP (occurrence: JP)
  Receive Date: 20191231
  Receipt Date: 20191231
  Transmission Date: 20200122
  Serious: Yes (Other)
  Sender: FDA-Public Use
  Company Number: JP-UCBSA-2019009623

PATIENT
  Age: 38 Year
  Sex: Female
  Weight: 48.3 kg

DRUGS (3)
  1. PREDNISOLONE. [Concomitant]
     Active Substance: PREDNISOLONE
     Indication: RHEUMATOID ARTHRITIS
     Dosage: 15 MILLIGRAM, WEEKLY (QW)
     Route: 048
     Dates: start: 20190308, end: 20190410
  2. RIMATIL [Concomitant]
     Active Substance: BUCILLAMINE
     Indication: RHEUMATOID ARTHRITIS
     Dosage: 100 MILLIGRAM, 2X/DAY (BID)
     Route: 048
     Dates: start: 20190215
  3. CIMZIA [Suspect]
     Active Substance: CERTOLIZUMAB PEGOL
     Indication: RHEUMATOID ARTHRITIS
     Dosage: 200 MG, EV 2 WEEKS(QOW)
     Route: 058
     Dates: start: 20181227, end: 20190315

REACTIONS (5)
  - Therapeutic product effect incomplete [Unknown]
  - Neutrophil count increased [Not Recovered/Not Resolved]
  - Maternal exposure before pregnancy [Unknown]
  - Blood albumin decreased [Not Recovered/Not Resolved]
  - Premature delivery [Unknown]

NARRATIVE: CASE EVENT DATE: 2019
